FAERS Safety Report 15468898 (Version 1)
Quarter: 2018Q4

REPORT INFORMATION
  Report Type: Spontaneous
  Country: JP (occurrence: JP)
  Receive Date: 20181005
  Receipt Date: 20181005
  Transmission Date: 20190205
  Serious: Yes (Death)
  Sender: FDA-Public Use
  Company Number: PHBS1998JP01953

PATIENT
  Sex: Female
  Weight: 54 kg

DRUGS (6)
  1. SANDIMMUN [Suspect]
     Active Substance: CYCLOSPORINE
     Dosage: 40 MG, BID
     Route: 042
     Dates: end: 19950906
  2. ENDOXAN [Concomitant]
     Active Substance: CYCLOPHOSPHAMIDE
     Indication: PRODUCT USED FOR UNKNOWN INDICATION
     Dosage: 3 G, UNK
     Route: 042
     Dates: start: 19950721, end: 19950722
  3. METHOTREXATE. [Concomitant]
     Active Substance: METHOTREXATE
     Indication: TRANSPLANT REJECTION
     Dosage: 15 MG, UNK
     Route: 042
     Dates: start: 19950725
  4. SANDIMMUN [Suspect]
     Active Substance: CYCLOSPORINE
     Dosage: 80 MG, BID
     Route: 042
     Dates: start: 19950826
  5. METHOTREXATE. [Concomitant]
     Active Substance: METHOTREXATE
     Dosage: 10 MG, UNK
     Route: 042
     Dates: end: 19950804
  6. SANDIMMUN [Suspect]
     Active Substance: CYCLOSPORINE
     Indication: BONE MARROW TRANSPLANT
     Dosage: 80 MG, BID
     Route: 042
     Dates: start: 19950723, end: 19950825

REACTIONS (2)
  - Pulmonary haemorrhage [Fatal]
  - Nystagmus [Unknown]
